FAERS Safety Report 14492349 (Version 2)
Quarter: 2018Q1

REPORT INFORMATION
  Report Type: Spontaneous
  Country: IT (occurrence: IT)
  Receive Date: 20180206
  Receipt Date: 20180219
  Transmission Date: 20180509
  Serious: Yes (Hospitalization)
  Sender: FDA-Public Use
  Company Number: PHHY2017IT199952

PATIENT
  Age: 81 Year
  Sex: Female

DRUGS (9)
  1. TARDYFER [Concomitant]
     Active Substance: FERROUS SULFATE
     Indication: ANAEMIA
     Dosage: 1 DF, UNK
     Route: 048
  2. LASIX [Concomitant]
     Active Substance: FUROSEMIDE
     Indication: HYPERTENSION
     Dosage: 2 DF, UNK
     Route: 048
  3. PRAZENE [Concomitant]
     Active Substance: PRAZEPAM
     Indication: ANXIETY
     Dosage: 10 MG, UNK
     Route: 048
  4. PANTORC [Concomitant]
     Active Substance: PANTOPRAZOLE SODIUM
     Indication: PROPHYLAXIS AGAINST GASTROINTESTINAL ULCER
     Dosage: 40 MG, UNK
     Route: 048
  5. DELTACORTENE [Suspect]
     Active Substance: PREDNISONE
     Indication: BRONCHOPNEUMOPATHY
     Dosage: 0.5 DF, QD
     Route: 048
  6. FOLINA [Concomitant]
     Active Substance: FOLIC ACID
     Indication: FOLATE DEFICIENCY
     Dosage: 5 MG, UNK
     Route: 048
  7. TICLOPIDINE HYDROCHLORIDE. [Suspect]
     Active Substance: TICLOPIDINE HYDROCHLORIDE
     Indication: THROMBOSIS PROPHYLAXIS
     Dosage: 500 MG, QD
     Route: 048
  8. ALIFLUS DISKUS [Concomitant]
     Active Substance: FLUTICASONE PROPIONATE\SALMETEROL XINAFOATE
     Indication: BRONCHOPNEUMOPATHY
     Dosage: 2 DF, UNK (POWDER DOSE FOR INAL)
     Route: 055
  9. NORMIX [Concomitant]
     Active Substance: RIFAXIMIN
     Indication: DIVERTICULUM INTESTINAL
     Dosage: 1 DF, UNK (WALLET COVERED TABLETS)
     Route: 048

REACTIONS (1)
  - Anaemia [Unknown]

NARRATIVE: CASE EVENT DATE: 20171213
